FAERS Safety Report 8826405 (Version 1)
Quarter: 2012Q4

REPORT INFORMATION
  Report Type: 
  Country: US (occurrence: US)
  Receive Date: 20121008
  Receipt Date: 20121008
  Transmission Date: 20130627
  Serious: Yes (Other)
  Sender: FDA-Public Use
  Company Number: US-RANBAXY-2012US-60704

PATIENT
  Sex: Female

DRUGS (1)
  1. CETIRIZINE [Suspect]
     Indication: COUGH
     Dosage: UNK
     Route: 065
     Dates: start: 20120923

REACTIONS (2)
  - Hypertension [Unknown]
  - Off label use [Unknown]
